FAERS Safety Report 5075280-2 (Version None)
Quarter: 2006Q3

REPORT INFORMATION
  Report Type: 
  Country: None (occurrence: None)
  Receive Date: 20060809
  Receipt Date: 20051031
  Transmission Date: 20061208
  Serious: No
  Sender: FDA-Public Use
  Company Number: US-AMGEN-KDL156383

PATIENT
  Sex: Female
  Weight: 73.5 kg

DRUGS (3)
  1. PROCRIT [Suspect]
     Indication: ANAEMIA
     Dates: start: 20050713
  2. IRON [Concomitant]
  3. POTASSIUM [Concomitant]

REACTIONS (1)
  - RETICULOCYTE COUNT DECREASED [None]
